FAERS Safety Report 6511081-3 (Version None)
Quarter: 2009Q4

REPORT INFORMATION
  Report Type: 
  Country: None (occurrence: None)
  Receive Date: 20091222
  Receipt Date: 20090223
  Transmission Date: 20100525
  Serious: No
  Sender: FDA-Public Use
  Company Number: US-ASTRAZENECA-2009UW04998

PATIENT
  Age: 51 Year
  Sex: Female

DRUGS (7)
  1. CRESTOR [Suspect]
     Indication: BLOOD CHOLESTEROL INCREASED
     Route: 048
     Dates: start: 20081201
  2. TOPROL-XL [Suspect]
     Dosage: UNKNOWN
     Route: 048
  3. PLAVIX [Concomitant]
  4. ASPIRIN [Concomitant]
  5. DIOVAN HCT [Concomitant]
  6. NIASPAN [Concomitant]
  7. RENEXA [Concomitant]

REACTIONS (5)
  - ARTHRALGIA [None]
  - BACK PAIN [None]
  - INSOMNIA [None]
  - MUSCULAR WEAKNESS [None]
  - STENT PLACEMENT [None]
